FAERS Safety Report 12443573 (Version 1)
Quarter: 2016Q2

REPORT INFORMATION
  Report Type: Spontaneous
  Country: US (occurrence: US)
  Receive Date: 20160607
  Receipt Date: 20160607
  Transmission Date: 20160815
  Serious: Yes (Death, Other)
  Sender: FDA-Public Use
  Company Number: US-JNJFOC-20160601281

PATIENT
  Sex: Female
  Weight: 102.51 kg

DRUGS (1)
  1. RISPERDAL [Suspect]
     Active Substance: RISPERIDONE
     Indication: PRODUCT USED FOR UNKNOWN INDICATION
     Route: 048

REACTIONS (14)
  - Pituitary tumour benign [Unknown]
  - Mastitis [Unknown]
  - Arthralgia [Unknown]
  - Lupus-like syndrome [Unknown]
  - Thyroid disorder [Unknown]
  - Toxic encephalopathy [Unknown]
  - Fibromyalgia [Unknown]
  - Tardive dyskinesia [Unknown]
  - Hiatus hernia [Unknown]
  - Renal injury [Unknown]
  - Mastectomy [Unknown]
  - Exposure during pregnancy [Unknown]
  - Splenomegaly [Unknown]
  - Death [Fatal]
